FAERS Safety Report 26060877 (Version 1)
Quarter: 2025Q4

REPORT INFORMATION
  Report Type: Spontaneous
  Country: US (occurrence: US)
  Receive Date: 20251118
  Receipt Date: 20251118
  Transmission Date: 20260118
  Serious: Yes (Death, Other)
  Sender: GILEAD
  Company Number: US-GILEAD-2025-0737156

PATIENT
  Age: 27 Year
  Sex: Female

DRUGS (1)
  1. TECARTUS [Suspect]
     Active Substance: BREXUCABTAGENE AUTOLEUCEL
     Indication: Acute lymphocytic leukaemia
     Dosage: 100000000 CELLS IV SUSP
     Route: 042
     Dates: start: 20250718, end: 20250718

REACTIONS (1)
  - Death [Fatal]

NARRATIVE: CASE EVENT DATE: 20250906
